FAERS Safety Report 6956164-9 (Version None)
Quarter: 2010Q3

REPORT INFORMATION
  Report Type: 
  Country: None (occurrence: None)
  Receive Date: 20100830
  Receipt Date: 20100818
  Transmission Date: 20110219
  Serious: Yes (Hospitalization)
  Sender: FDA-Public Use
  Company Number: PHFR2010GB00915

PATIENT
  Sex: Female

DRUGS (6)
  1. CLOZARIL [Suspect]
     Indication: SCHIZOPHRENIA
     Dosage: 150 MG, BID
     Route: 048
     Dates: start: 20051111
  2. AMISULPRIDE [Suspect]
     Indication: PSYCHOTIC DISORDER
     Dosage: 100 MG, BID
     Route: 048
  3. ZOPICLONE [Concomitant]
     Indication: SLEEP DISORDER
     Dosage: 7.5MG/DAY
     Route: 048
  4. LEVOTHYROXINE [Concomitant]
  5. MIRTAZAPINE [Concomitant]
     Indication: DEPRESSED MOOD
     Dosage: 45MG/DAY
     Route: 065
  6. CITALOPRAM [Concomitant]
     Indication: DEPRESSED MOOD
     Dosage: 40MG
     Route: 048

REACTIONS (4)
  - DECREASED APPETITE [None]
  - DEHYDRATION [None]
  - FALL [None]
  - GAIT DISTURBANCE [None]
